FAERS Safety Report 21885103 (Version 3)
Quarter: 2023Q1

REPORT INFORMATION
  Report Type: Spontaneous
  Country: JP (occurrence: JP)
  Receive Date: 20230119
  Receipt Date: 20230316
  Transmission Date: 20230418
  Serious: Yes (Disabling, Other)
  Sender: FDA-Public Use
  Company Number: JP-ABBVIE-4276076

PATIENT
  Age: 78 Year
  Sex: Male

DRUGS (5)
  1. RINVOQ [Suspect]
     Active Substance: UPADACITINIB
     Indication: Rheumatoid arthritis
     Dosage: FORM STRENGTH: 7.5 MILLIGRAM?FIRST ADMIN DATE WAS 04 AUG 2022.
     Route: 048
     Dates: end: 20221020
  2. MIZORIBINE [Suspect]
     Active Substance: MIZORIBINE
     Indication: Rheumatoid arthritis
     Dosage: FORM STRENGTH: 50 MILLIGRAM
     Route: 048
     Dates: end: 20220915
  3. MIZORIBINE [Suspect]
     Active Substance: MIZORIBINE
     Indication: Rheumatoid arthritis
     Dosage: FORM STRENGTH: 50 MILLIGRAM
     Route: 048
     Dates: start: 20221020
  4. MIZORIBINE [Suspect]
     Active Substance: MIZORIBINE
     Indication: Rheumatoid arthritis
     Dosage: FORM STRENGTH: 50 MILLIGRAM
     Route: 048
  5. FERROUS SULFATE [Concomitant]
     Active Substance: FERROUS SULFATE
     Indication: Product used for unknown indication
     Dosage: FORM STRENGTH: 105 MILLIGRAM
     Route: 048
     Dates: start: 20220804

REACTIONS (1)
  - Nephrogenic anaemia [Not Recovered/Not Resolved]

NARRATIVE: CASE EVENT DATE: 20220801
